FAERS Safety Report 14851337 (Version 7)
Quarter: 2020Q4

REPORT INFORMATION
  Report Type: Spontaneous
  Country: HR (occurrence: HR)
  Receive Date: 20180507
  Receipt Date: 20201207
  Transmission Date: 20210113
  Serious: Yes (Hospitalization)
  Sender: FDA-Public Use
  Company Number: HR-ROCHE-2113156

PATIENT
  Age: 32 Year
  Sex: Male

DRUGS (93)
  1. MIDAZOLAM. [Suspect]
     Active Substance: MIDAZOLAM
     Indication: ESSENTIAL HYPERTENSION
     Route: 065
  2. DIAZEPAM. [Suspect]
     Active Substance: DIAZEPAM
     Indication: BIPOLAR DISORDER
     Dosage: DOSAGE FORM: UNSPECIFIED
     Route: 065
     Dates: start: 2010
  3. DIAZEPAM. [Suspect]
     Active Substance: DIAZEPAM
     Indication: SOMATIC SYMPTOM DISORDER
     Dosage: DOSAGE FORM: UNSPECIFIED
     Route: 065
     Dates: start: 2010
  4. DIAZEPAM. [Suspect]
     Active Substance: DIAZEPAM
     Indication: HYPOMANIA
     Dosage: DOSAGE FORM: UNSPECIFIED
     Route: 065
     Dates: start: 2011
  5. DIAZEPAM. [Suspect]
     Active Substance: DIAZEPAM
     Indication: DEPRESSION
     Dosage: DOSAGE FORM: UNSPECIFIED
     Route: 065
     Dates: start: 2010
  6. DIAZEPAM. [Suspect]
     Active Substance: DIAZEPAM
     Indication: BIPOLAR DISORDER
     Dosage: DOSAGE FORM: UNSPECIFIED
     Route: 065
     Dates: start: 2010
  7. DIAZEPAM. [Suspect]
     Active Substance: DIAZEPAM
     Indication: SCHIZOAFFECTIVE DISORDER
     Dosage: DOSAGE FORM: UNSPECIFIED
     Route: 065
     Dates: start: 201110
  8. RISPERIDONE. [Suspect]
     Active Substance: RISPERIDONE
     Indication: PSYCHOTIC DISORDER
     Dosage: DOSAGE FORM: UNSPECIFIED
     Route: 048
  9. LAMOTRIGINE. [Suspect]
     Active Substance: LAMOTRIGINE
     Indication: SOMATIC SYMPTOM DISORDER
     Dosage: DOSAGE FORM: UNSPECIFIED
     Route: 065
     Dates: start: 2010
  10. LAMOTRIGINE. [Suspect]
     Active Substance: LAMOTRIGINE
     Indication: ADJUSTMENT DISORDER
     Dosage: DOSAGE FORM: UNSPECIFIED
     Route: 065
     Dates: start: 2011
  11. CONCOR [Suspect]
     Active Substance: BISOPROLOL FUMARATE
     Indication: PSYCHOTIC DISORDER
     Route: 065
  12. DIAZEPAM. [Suspect]
     Active Substance: DIAZEPAM
     Indication: ESSENTIAL HYPERTENSION
     Dosage: DOSAGE FORM: UNSPECIFIED
     Route: 065
     Dates: start: 2011
  13. DIAZEPAM. [Suspect]
     Active Substance: DIAZEPAM
     Indication: SCHIZOAFFECTIVE DISORDER
     Dosage: DOSAGE FORM: UNSPECIFIED
     Route: 065
     Dates: start: 200812
  14. DIAZEPAM. [Suspect]
     Active Substance: DIAZEPAM
     Indication: ADJUSTMENT DISORDER
     Dosage: DOSAGE FORM: UNSPECIFIED
     Route: 065
     Dates: start: 201110
  15. DIAZEPAM. [Suspect]
     Active Substance: DIAZEPAM
     Indication: ESSENTIAL HYPERTENSION
     Dosage: DOSAGE FORM: UNSPECIFIED
     Route: 065
     Dates: start: 201110
  16. DIAZEPAM. [Suspect]
     Active Substance: DIAZEPAM
     Indication: SOMATIC SYMPTOM DISORDER
     Dosage: DOSAGE FORM: UNSPECIFIED
     Route: 065
     Dates: start: 201110
  17. RISPERIDONE. [Suspect]
     Active Substance: RISPERIDONE
     Indication: PSYCHOTIC DISORDER
     Dosage: DOSAGE FORM: UNSPECIFIED
     Route: 048
  18. RISPERIDONE. [Suspect]
     Active Substance: RISPERIDONE
     Indication: SCHIZOAFFECTIVE DISORDER
     Dosage: DOSAGE FORM: UNSPECIFIED
     Route: 048
  19. RISPERIDONE. [Suspect]
     Active Substance: RISPERIDONE
     Indication: ESSENTIAL HYPERTENSION
     Dosage: DOSAGE FORM: UNSPECIFIED
     Route: 048
  20. LAMOTRIGINE. [Suspect]
     Active Substance: LAMOTRIGINE
     Indication: SOMATIC SYMPTOM DISORDER
     Dosage: DOSAGE FORM: UNSPECIFIED
     Route: 065
     Dates: start: 2010
  21. LAMOTRIGINE. [Suspect]
     Active Substance: LAMOTRIGINE
     Indication: SCHIZOAFFECTIVE DISORDER
     Dosage: DOSAGE FORM: UNSPECIFIED
     Route: 065
     Dates: start: 2010
  22. CONCOR [Suspect]
     Active Substance: BISOPROLOL FUMARATE
     Indication: SCHIZOAFFECTIVE DISORDER
     Route: 065
  23. RISPOLEPT CONSTA [Suspect]
     Active Substance: RISPERIDONE
     Route: 065
     Dates: start: 201304, end: 201505
  24. MIDAZOLAM. [Suspect]
     Active Substance: MIDAZOLAM
     Indication: SCHIZOAFFECTIVE DISORDER
     Route: 065
  25. DIAZEPAM. [Suspect]
     Active Substance: DIAZEPAM
     Indication: DEPRESSION
     Dosage: DOSAGE FORM: UNSPECIFIED
     Route: 065
     Dates: start: 200812
  26. DIAZEPAM. [Suspect]
     Active Substance: DIAZEPAM
     Indication: HYPOMANIA
     Dosage: DOSAGE FORM: UNSPECIFIED
     Route: 065
     Dates: start: 200812
  27. DIAZEPAM. [Suspect]
     Active Substance: DIAZEPAM
     Indication: HYPOMANIA
     Dosage: DOSAGE FORM: UNSPECIFIED
     Route: 065
     Dates: start: 2011
  28. DIAZEPAM. [Suspect]
     Active Substance: DIAZEPAM
     Indication: PSYCHOTIC DISORDER
     Dosage: DOSAGE FORM: UNSPECIFIED
     Route: 065
     Dates: start: 2011
  29. DIAZEPAM. [Suspect]
     Active Substance: DIAZEPAM
     Indication: DEPRESSION
     Dosage: DOSAGE FORM: UNSPECIFIED
     Route: 065
     Dates: start: 200812
  30. RISPERIDONE. [Suspect]
     Active Substance: RISPERIDONE
     Indication: SOMATIC SYMPTOM DISORDER
     Dosage: DOSAGE FORM: UNSPECIFIED
     Route: 048
  31. RISPERIDONE. [Suspect]
     Active Substance: RISPERIDONE
     Indication: ESSENTIAL HYPERTENSION
     Dosage: DOSAGE FORM: UNSPECIFIED
     Route: 048
  32. LAMOTRIGINE. [Suspect]
     Active Substance: LAMOTRIGINE
     Indication: SCHIZOAFFECTIVE DISORDER
     Dosage: DOSAGE FORM: UNSPECIFIED
     Route: 065
     Dates: start: 200812
  33. LAMOTRIGINE. [Suspect]
     Active Substance: LAMOTRIGINE
     Indication: DEPRESSION
     Dosage: DOSAGE FORM: UNSPECIFIED
     Route: 065
     Dates: start: 201110
  34. LAMOTRIGINE. [Suspect]
     Active Substance: LAMOTRIGINE
     Indication: ADJUSTMENT DISORDER
     Dosage: DOSAGE FORM: UNSPECIFIED
     Route: 065
     Dates: start: 200812
  35. LAMOTRIGINE. [Suspect]
     Active Substance: LAMOTRIGINE
     Indication: ESSENTIAL HYPERTENSION
     Dosage: DOSAGE FORM: UNSPECIFIED
     Route: 065
     Dates: start: 200812
  36. RAMIPRIL. [Suspect]
     Active Substance: RAMIPRIL
     Indication: SCHIZOAFFECTIVE DISORDER
     Dosage: DOSAGE FORM: UNSPECIFIED
     Route: 048
  37. DIAZEPAM. [Suspect]
     Active Substance: DIAZEPAM
     Indication: SOMATIC SYMPTOM DISORDER
     Dosage: DOSAGE FORM: UNSPECIFIED
     Route: 065
     Dates: start: 201110
  38. DIAZEPAM. [Suspect]
     Active Substance: DIAZEPAM
     Indication: PSYCHOTIC DISORDER
     Dosage: DOSAGE FORM: UNSPECIFIED
     Route: 065
     Dates: start: 201110
  39. DIAZEPAM. [Suspect]
     Active Substance: DIAZEPAM
     Indication: ADJUSTMENT DISORDER
     Dosage: DOSAGE FORM: UNSPECIFIED
     Route: 065
     Dates: start: 2010
  40. DIAZEPAM. [Suspect]
     Active Substance: DIAZEPAM
     Indication: ESSENTIAL HYPERTENSION
     Dosage: DOSAGE FORM: UNSPECIFIED
     Route: 065
     Dates: start: 2011
  41. DIAZEPAM. [Suspect]
     Active Substance: DIAZEPAM
     Indication: ADJUSTMENT DISORDER
     Dosage: DOSAGE FORM: UNSPECIFIED
     Route: 065
     Dates: start: 2011
  42. LAMOTRIGINE. [Suspect]
     Active Substance: LAMOTRIGINE
     Indication: BIPOLAR DISORDER
     Dosage: DOSAGE FORM: UNSPECIFIED
     Route: 065
     Dates: start: 2010
  43. LAMOTRIGINE. [Suspect]
     Active Substance: LAMOTRIGINE
     Indication: HYPOMANIA
     Dosage: DOSAGE FORM: UNSPECIFIED
     Route: 065
     Dates: start: 2011
  44. LAMOTRIGINE. [Suspect]
     Active Substance: LAMOTRIGINE
     Indication: SCHIZOAFFECTIVE DISORDER
     Dosage: DOSAGE FORM: UNSPECIFIED
     Route: 065
     Dates: start: 201110
  45. LAMOTRIGINE. [Suspect]
     Active Substance: LAMOTRIGINE
     Indication: HYPOMANIA
     Dosage: DOSAGE FORM: UNSPECIFIED
     Route: 065
     Dates: start: 200812
  46. LAMOTRIGINE. [Suspect]
     Active Substance: LAMOTRIGINE
     Indication: ADJUSTMENT DISORDER
     Dosage: DOSAGE FORM: UNSPECIFIED
     Route: 065
     Dates: start: 200812
  47. LAMOTRIGINE. [Suspect]
     Active Substance: LAMOTRIGINE
     Indication: ESSENTIAL HYPERTENSION
     Dosage: DOSAGE FORM: UNSPECIFIED
     Route: 065
     Dates: start: 201110
  48. BYOL [Suspect]
     Active Substance: BISOPROLOL
     Indication: SCHIZOAFFECTIVE DISORDER
     Dosage: DOSAGE FORM: UNSPECIFIED
     Route: 065
  49. MIDAZOLAM. [Suspect]
     Active Substance: MIDAZOLAM
     Indication: SOMATIC SYMPTOM DISORDER
     Route: 065
  50. MIDAZOLAM. [Suspect]
     Active Substance: MIDAZOLAM
     Indication: PSYCHOTIC DISORDER
     Route: 065
  51. MIDAZOLAM. [Suspect]
     Active Substance: MIDAZOLAM
     Indication: ESSENTIAL HYPERTENSION
     Route: 065
  52. MIDAZOLAM. [Suspect]
     Active Substance: MIDAZOLAM
     Indication: SOMATIC SYMPTOM DISORDER
     Route: 065
  53. DIAZEPAM. [Suspect]
     Active Substance: DIAZEPAM
     Indication: PSYCHOTIC DISORDER
     Dosage: DOSAGE FORM: UNSPECIFIED
     Route: 065
     Dates: start: 200812
  54. DIAZEPAM. [Suspect]
     Active Substance: DIAZEPAM
     Indication: BIPOLAR DISORDER
     Dosage: DOSAGE FORM: UNSPECIFIED
     Route: 065
     Dates: start: 2011
  55. RISPERIDONE. [Suspect]
     Active Substance: RISPERIDONE
     Indication: SCHIZOAFFECTIVE DISORDER
     Dosage: DOSAGE FORM: UNSPECIFIED
     Route: 048
  56. LAMOTRIGINE. [Suspect]
     Active Substance: LAMOTRIGINE
     Indication: BIPOLAR DISORDER
     Dosage: DOSAGE FORM: UNSPECIFIED
     Route: 065
     Dates: start: 201110
  57. LAMOTRIGINE. [Suspect]
     Active Substance: LAMOTRIGINE
     Indication: SCHIZOAFFECTIVE DISORDER
     Dosage: DOSAGE FORM: UNSPECIFIED
     Route: 065
     Dates: start: 2010
  58. LAMOTRIGINE. [Suspect]
     Active Substance: LAMOTRIGINE
     Indication: DEPRESSION
     Dosage: DOSAGE FORM: UNSPECIFIED
     Route: 065
     Dates: start: 2010
  59. LAMOTRIGINE. [Suspect]
     Active Substance: LAMOTRIGINE
     Indication: HYPOMANIA
     Dosage: DOSAGE FORM: UNSPECIFIED
     Route: 065
     Dates: start: 2011
  60. LAMOTRIGINE. [Suspect]
     Active Substance: LAMOTRIGINE
     Indication: HYPOMANIA
     Dosage: DOSAGE FORM: UNSPECIFIED
     Route: 065
     Dates: start: 2011
  61. LAMOTRIGINE. [Suspect]
     Active Substance: LAMOTRIGINE
     Indication: DEPRESSION
     Dosage: DOSAGE FORM: UNSPECIFIED
     Route: 065
     Dates: start: 200812
  62. RISPOLEPT CONSTA [Suspect]
     Active Substance: RISPERIDONE
     Indication: SCHIZOAFFECTIVE DISORDER
     Dosage: 50 MG, UNK
     Route: 065
     Dates: start: 201110, end: 201304
  63. MIDAZOLAM. [Suspect]
     Active Substance: MIDAZOLAM
     Indication: SCHIZOAFFECTIVE DISORDER
     Route: 065
  64. MIDAZOLAM. [Suspect]
     Active Substance: MIDAZOLAM
     Indication: PSYCHOTIC DISORDER
     Route: 065
  65. RISPERIDONE. [Suspect]
     Active Substance: RISPERIDONE
     Indication: ESSENTIAL HYPERTENSION
     Dosage: DOSAGE FORM: UNSPECIFIED
     Route: 048
  66. LAMOTRIGINE. [Suspect]
     Active Substance: LAMOTRIGINE
     Indication: SOMATIC SYMPTOM DISORDER
     Dosage: DOSAGE FORM: UNSPECIFIED
     Route: 065
     Dates: start: 2011
  67. LAMOTRIGINE. [Suspect]
     Active Substance: LAMOTRIGINE
     Indication: PSYCHOTIC DISORDER
     Dosage: DOSAGE FORM: UNSPECIFIED
     Route: 065
     Dates: start: 2011
  68. LAMOTRIGINE. [Suspect]
     Active Substance: LAMOTRIGINE
     Indication: SOMATIC SYMPTOM DISORDER
     Dosage: DOSAGE FORM: UNSPECIFIED
     Route: 065
     Dates: start: 201110
  69. CONCOR [Suspect]
     Active Substance: BISOPROLOL FUMARATE
     Indication: SCHIZOAFFECTIVE DISORDER
     Route: 065
  70. CONCOR [Suspect]
     Active Substance: BISOPROLOL FUMARATE
     Indication: ESSENTIAL HYPERTENSION
     Route: 065
  71. DIAZEPAM. [Suspect]
     Active Substance: DIAZEPAM
     Indication: HYPOMANIA
     Dosage: DOSAGE FORM: UNSPECIFIED
     Route: 065
     Dates: start: 201110
  72. DIAZEPAM. [Suspect]
     Active Substance: DIAZEPAM
     Indication: BIPOLAR DISORDER
     Dosage: DOSAGE FORM: UNSPECIFIED
     Route: 065
     Dates: start: 201110
  73. DIAZEPAM. [Suspect]
     Active Substance: DIAZEPAM
     Indication: DEPRESSION
     Dosage: DOSAGE FORM: UNSPECIFIED
     Route: 065
     Dates: start: 200812
  74. DIAZEPAM. [Suspect]
     Active Substance: DIAZEPAM
     Indication: ESSENTIAL HYPERTENSION
     Dosage: DOSAGE FORM: UNSPECIFIED
     Route: 065
     Dates: start: 2010
  75. DIAZEPAM. [Suspect]
     Active Substance: DIAZEPAM
     Indication: PSYCHOTIC DISORDER
     Dosage: DOSAGE FORM: UNSPECIFIED
     Route: 065
  76. LAMOTRIGINE. [Suspect]
     Active Substance: LAMOTRIGINE
     Indication: ESSENTIAL HYPERTENSION
     Dosage: DOSAGE FORM: UNSPECIFIED
     Route: 065
     Dates: start: 2011
  77. LAMOTRIGINE. [Suspect]
     Active Substance: LAMOTRIGINE
     Indication: ADJUSTMENT DISORDER
     Dosage: DOSAGE FORM: UNSPECIFIED
     Route: 065
     Dates: start: 201110
  78. LAMOTRIGINE. [Suspect]
     Active Substance: LAMOTRIGINE
     Indication: DEPRESSION
     Dosage: DOSAGE FORM: UNSPECIFIED
     Route: 065
     Dates: start: 2010
  79. LAMOTRIGINE. [Suspect]
     Active Substance: LAMOTRIGINE
     Indication: PSYCHOTIC DISORDER
     Dosage: DOSAGE FORM: UNSPECIFIED
     Route: 065
     Dates: start: 201110
  80. DIAZEPAM. [Suspect]
     Active Substance: DIAZEPAM
     Indication: SOMATIC SYMPTOM DISORDER
     Dosage: DOSAGE FORM: UNSPECIFIED
     Route: 065
     Dates: start: 2010
  81. DIAZEPAM. [Suspect]
     Active Substance: DIAZEPAM
     Indication: PSYCHOTIC DISORDER
     Dosage: DOSAGE FORM: UNSPECIFIED
     Route: 065
     Dates: start: 201110
  82. DIAZEPAM. [Suspect]
     Active Substance: DIAZEPAM
     Indication: SCHIZOAFFECTIVE DISORDER
     Dosage: DOSAGE FORM: UNSPECIFIED
     Route: 065
     Dates: start: 200812
  83. DIAZEPAM. [Suspect]
     Active Substance: DIAZEPAM
     Indication: SCHIZOAFFECTIVE DISORDER
     Dosage: DOSAGE FORM: UNSPECIFIED
     Route: 065
     Dates: start: 200812
  84. LAMOTRIGINE. [Suspect]
     Active Substance: LAMOTRIGINE
     Indication: PSYCHOTIC DISORDER
     Dosage: DOSAGE FORM: UNSPECIFIED
     Route: 065
     Dates: start: 2010
  85. LAMOTRIGINE. [Suspect]
     Active Substance: LAMOTRIGINE
     Indication: BIPOLAR DISORDER
     Dosage: DOSAGE FORM: UNSPECIFIED
     Route: 065
     Dates: start: 201110
  86. LAMOTRIGINE. [Suspect]
     Active Substance: LAMOTRIGINE
     Indication: BIPOLAR DISORDER
     Dosage: DOSAGE FORM: UNSPECIFIED
     Route: 065
     Dates: start: 200812
  87. LAMOTRIGINE. [Suspect]
     Active Substance: LAMOTRIGINE
     Indication: DEPRESSION
     Dosage: DOSAGE FORM: UNSPECIFIED
     Route: 065
     Dates: start: 2011
  88. LAMOTRIGINE. [Suspect]
     Active Substance: LAMOTRIGINE
     Indication: SOMATIC SYMPTOM DISORDER
     Dosage: DOSAGE FORM: UNSPECIFIED
     Route: 065
     Dates: start: 200812
  89. CONCOR [Suspect]
     Active Substance: BISOPROLOL FUMARATE
     Indication: SOMATIC SYMPTOM DISORDER
     Dosage: UNK
     Route: 065
  90. CONCOR [Suspect]
     Active Substance: BISOPROLOL FUMARATE
     Indication: PSYCHOTIC DISORDER
     Route: 065
  91. CONCOR [Suspect]
     Active Substance: BISOPROLOL FUMARATE
     Indication: ESSENTIAL HYPERTENSION
     Route: 065
  92. CONCOR [Suspect]
     Active Substance: BISOPROLOL FUMARATE
     Indication: PSYCHOTIC DISORDER
     Route: 065
  93. CLOZAPINE. [Suspect]
     Active Substance: CLOZAPINE
     Indication: SCHIZOAFFECTIVE DISORDER
     Dosage: DOSAGE FORM: UNSPECIFIED
     Route: 065

REACTIONS (3)
  - Depression [Recovered/Resolved]
  - Condition aggravated [Unknown]
  - Illusion [Unknown]

NARRATIVE: CASE EVENT DATE: 201304
